FAERS Safety Report 17910946 (Version 5)
Quarter: 2021Q2

REPORT INFORMATION
  Report Type: Spontaneous
  Country: DE (occurrence: DE)
  Receive Date: 20200618
  Receipt Date: 20210429
  Transmission Date: 20210717
  Serious: Yes (Life-Threatening, Hospitalization, Other)
  Sender: FDA-Public Use
  Company Number: NVSC2020DE169310

PATIENT
  Age: 69 Year
  Sex: Male
  Weight: 77 kg

DRUGS (24)
  1. SIMVASTATIN. [Interacting]
     Active Substance: SIMVASTATIN
     Indication: BLOOD CHOLESTEROL
     Dosage: 40 MG, QD (0?0?1)
     Route: 065
     Dates: start: 201808
  2. SIMVASTATIN. [Interacting]
     Active Substance: SIMVASTATIN
     Indication: CORONARY ARTERY DISEASE
     Dosage: 15 IU, QD
     Route: 065
     Dates: start: 201808
  3. AVASTIN [Interacting]
     Active Substance: BEVACIZUMAB
     Indication: DIABETIC RETINAL OEDEMA
     Dosage: UNK (EINSPRITZEN INS RECHTE AUGE UM 13.30 UHRINJECT IN THE RIGHT EYE AT 13.30)
     Route: 031
     Dates: start: 20200115
  4. PROCORALAN [Interacting]
     Active Substance: IVABRADINE
     Indication: CARDIAC DISORDER
     Dosage: 7.5 MG, QD (1?0?0)
     Route: 065
     Dates: start: 201808
  5. SIMVASTATIN. [Interacting]
     Active Substance: SIMVASTATIN
     Indication: DIABETES MELLITUS
     Dosage: 10 MG, QD
     Route: 065
     Dates: start: 201808
  6. SIMVASTATIN. [Interacting]
     Active Substance: SIMVASTATIN
     Indication: HYPERTENSION
     Dosage: 40 MG, QD (0?0?1)
     Route: 065
     Dates: start: 20110506
  7. ELIQUIS [Interacting]
     Active Substance: APIXABAN
     Indication: CEREBROVASCULAR ACCIDENT PROPHYLAXIS
     Dosage: 10 MG, QD (1?0?1)
     Route: 065
     Dates: start: 201808
  8. MILGAMMA PROTEKT [Interacting]
     Active Substance: BENFOTIAMINE
     Indication: CEREBROVASCULAR ACCIDENT PROPHYLAXIS
     Dosage: 300 MG, QD
     Route: 065
     Dates: start: 201808
  9. CARVEDILOL. [Suspect]
     Active Substance: CARVEDILOL
     Indication: CARDIAC DISORDER
     Dosage: 25 MG, Q12H (1?0?1)
     Route: 065
     Dates: start: 201808
  10. SPIRONOLACTONE. [Interacting]
     Active Substance: SPIRONOLACTONE
     Indication: CORONARY ARTERY DISEASE
     Dosage: 50 MG, QD
     Route: 048
     Dates: start: 20110506
  11. LEVETIRACETAM. [Concomitant]
     Active Substance: LEVETIRACETAM
     Indication: PRODUCT USED FOR UNKNOWN INDICATION
     Dosage: 2 DF, QD (1?0?1)
     Route: 065
  12. TORASEMIDE [Interacting]
     Active Substance: TORSEMIDE
     Indication: RENAL DISORDER
     Dosage: 10 MG, QD IN MORNING, DAILY,1?0?0
     Route: 065
     Dates: start: 201808
  13. SIMVASTATIN. [Interacting]
     Active Substance: SIMVASTATIN
     Dosage: 100 MG, QD (0?0?115 INTERNATIONAL UNIT, DAILY)
     Route: 065
     Dates: start: 201808
  14. MILGAMMA PROTEKT [Interacting]
     Active Substance: BENFOTIAMINE
     Indication: CARDIOVASCULAR DISORDER
  15. ABASAGLAR [Interacting]
     Active Substance: INSULIN GLARGINE
     Indication: DIABETES MELLITUS
     Dosage: 15 IU, QD (15 IE IN THE EVENING)
     Route: 065
     Dates: start: 201808
  16. INSULIN GLARGINE [Interacting]
     Active Substance: INSULIN GLARGINE
     Indication: DIABETES MELLITUS
     Dosage: 15 IU, QD
     Route: 065
     Dates: start: 201808
  17. AMLODIPINE [Interacting]
     Active Substance: AMLODIPINE BESYLATE
     Indication: HYPERTENSION
     Dosage: 5 MG, Q12H
     Route: 065
     Dates: start: 201808
  18. JANUMET [Interacting]
     Active Substance: METFORMIN HYDROCHLORIDE\SITAGLIPTIN PHOSPHATE
     Indication: DIABETES MELLITUS
     Dosage: 1 DF, QD
     Route: 065
     Dates: start: 201808
  19. SIMVASTATIN. [Interacting]
     Active Substance: SIMVASTATIN
     Indication: GOUT
     Dosage: 50 MG, QD (0?0?1)
     Route: 065
     Dates: start: 201808
  20. SPIRONOLACTONE. [Interacting]
     Active Substance: SPIRONOLACTONE
     Indication: CARDIAC DISORDER
     Dosage: 50 MG, QD
     Route: 065
     Dates: start: 201808
  21. RAMIPRIL. [Interacting]
     Active Substance: RAMIPRIL
     Indication: HYPERTENSION
     Dosage: 5 MG, Q12H (1?0?1)
     Route: 065
     Dates: start: 201808
  22. JANUMET [Interacting]
     Active Substance: METFORMIN HYDROCHLORIDE\SITAGLIPTIN PHOSPHATE
     Dosage: 2 DF, QD (1 DOSAGE FORM, Q12H)
     Route: 065
     Dates: start: 201808
  23. ALLOPURINOL. [Interacting]
     Active Substance: ALLOPURINOL
     Indication: GOUT
     Dosage: 100 MG, QD
     Route: 065
     Dates: start: 201808
  24. ELIQUIS [Interacting]
     Active Substance: APIXABAN
     Indication: ATRIAL FIBRILLATION
     Dosage: 5 MG, Q12H (1?0?1)
     Route: 065
     Dates: start: 201808

REACTIONS (9)
  - Status epilepticus [Recovered/Resolved]
  - Product use issue [Recovered/Resolved]
  - Oculogyric crisis [Recovered/Resolved]
  - Drug interaction [Recovered/Resolved]
  - Muscle spasms [Recovered/Resolved]
  - Off label use [Recovered/Resolved]
  - Eye movement disorder [Recovered/Resolved]
  - Movement disorder [Recovered/Resolved]
  - Seizure [Recovered/Resolved]

NARRATIVE: CASE EVENT DATE: 201808
